FAERS Safety Report 23014962 (Version 1)
Quarter: 2023Q4

REPORT INFORMATION
  Report Type: Spontaneous
  Country: US (occurrence: US)
  Receive Date: 20231002
  Receipt Date: 20231002
  Transmission Date: 20240109
  Serious: Yes (Hospitalization)
  Sender: FDA-Public Use
  Company Number: US-ANIPHARMA-2023-US-030174

PATIENT
  Age: 83 Year
  Sex: Male
  Weight: 72.58 kg

DRUGS (8)
  1. CORTICOTROPIN [Suspect]
     Active Substance: CORTICOTROPIN
     Indication: Blood cholesterol abnormal
     Dosage: 80 UNITS UNDER THE SKIN, TWICE A WEEK
     Route: 058
     Dates: start: 20230807
  2. CARVEDILOL [Concomitant]
     Active Substance: CARVEDILOL
     Route: 065
  3. FINASTERIDE [Concomitant]
     Active Substance: FINASTERIDE
     Route: 065
  4. LASIX [Concomitant]
     Active Substance: FUROSEMIDE
     Route: 065
  5. LOSARTAN [Concomitant]
     Active Substance: LOSARTAN
     Route: 065
  6. APIXABAN [Concomitant]
     Active Substance: APIXABAN
     Route: 065
  7. METOLAZONE [Concomitant]
     Active Substance: METOLAZONE
     Route: 065
  8. VITAMIN D [Concomitant]
     Active Substance: VITAMIN D NOS
     Route: 065

REACTIONS (7)
  - Headache [Recovered/Resolved]
  - Fall [Recovered/Resolved]
  - Oedema peripheral [Unknown]
  - Product use in unapproved indication [Unknown]
  - Asthenia [Recovered/Resolved]
  - Balance disorder [Recovered/Resolved]
  - Contraindicated product administered [Unknown]

NARRATIVE: CASE EVENT DATE: 20230807
